FAERS Safety Report 4294878-2 (Version None)
Quarter: 2004Q1

REPORT INFORMATION
  Report Type: 
  Country: None (occurrence: None)
  Receive Date: 20040216
  Receipt Date: 20030205
  Transmission Date: 20041129
  Serious: No
  Sender: FDA-Public Use
  Company Number: US-GLAXOSMITHKLINE-A0395667A

PATIENT
  Age: 62 Year
  Sex: Female

DRUGS (11)
  1. LAMICTAL [Suspect]
     Dosage: 200MG PER DAY
     Route: 048
  2. METADATE [Concomitant]
     Dosage: 10MG PER DAY
     Route: 065
  3. EFFEXOR XR [Concomitant]
     Dosage: 225MG PER DAY
     Route: 065
  4. ATIVAN [Concomitant]
     Dosage: 1MG THREE TIMES PER DAY
     Route: 065
  5. LITHOBID [Concomitant]
     Dosage: 300MG TWICE PER DAY
     Route: 065
  6. PRILOSEC [Concomitant]
     Route: 065
  7. MIRALAX [Concomitant]
     Dosage: 17MG PER DAY
     Route: 065
  8. VIOXX [Concomitant]
     Dosage: 25U PER DAY
     Route: 065
  9. VITAMIN CAP [Concomitant]
  10. B12 [Concomitant]
  11. CALCIUM [Concomitant]

REACTIONS (1)
  - TONGUE DISORDER [None]
